FAERS Safety Report 7272474-2 (Version None)
Quarter: 2011Q1

REPORT INFORMATION
  Report Type: 
  Country: None (occurrence: None)
  Receive Date: 20110126
  Receipt Date: 20110111
  Transmission Date: 20110831
  Serious: Yes (Other)
  Sender: FDA-Public Use
  Company Number: AUR-APL-2009-01354

PATIENT
  Age: 36 Year
  Sex: Female

DRUGS (2)
  1. MIRTAZAPINE [Suspect]
     Dosage: 15MG - DAILY - ORAL
     Route: 048
     Dates: start: 20090329, end: 20090331
  2. LORAZEPAM [Suspect]
     Dosage: 2-3MG - DAILY - ORAL
     Route: 048
     Dates: start: 20090329, end: 20090414

REACTIONS (2)
  - CIRCULATORY COLLAPSE [None]
  - FALL [None]
